FAERS Safety Report 22913797 (Version 2)
Quarter: 2023Q4

REPORT INFORMATION
  Report Type: Spontaneous
  Country: US (occurrence: US)
  Receive Date: 20230906
  Receipt Date: 20231005
  Transmission Date: 20240109
  Serious: No
  Sender: FDA-Public Use
  Company Number: US-PFIZER INC-PV202300149279

PATIENT
  Age: 25 Year
  Sex: Male

DRUGS (1)
  1. ZAVZPRET [Suspect]
     Active Substance: ZAVEGEPANT HYDROCHLORIDE
     Indication: Headache
     Dosage: 10 MG, AS NEEDED (ONE SPRAY OVER ONE NOSTRIL AS NEEDED FOR HEADACHE)
     Route: 045

REACTIONS (3)
  - Nausea [Unknown]
  - Headache [Unknown]
  - Off label use [Unknown]
